FAERS Safety Report 4522367-6 (Version None)
Quarter: 2004Q4

REPORT INFORMATION
  Report Type: 
  Country: None (occurrence: None)
  Receive Date: 20041209
  Receipt Date: 20041130
  Transmission Date: 20050328
  Serious: Yes (Life-Threatening, Hospitalization)
  Sender: FDA-Public Use
  Company Number: GB-GLAXOSMITHKLINE-B0358682A

PATIENT
  Age: 12 Year
  Sex: Female
  Weight: 52 kg

DRUGS (5)
  1. LAMOTRIGINE [Suspect]
     Dosage: 125MG TWICE PER DAY
     Route: 065
     Dates: start: 19970301
  2. CLOBAZAM [Suspect]
     Dosage: 20MG TWICE PER DAY
     Route: 065
     Dates: start: 19990701
  3. VALPROATE SODIUM [Suspect]
     Dosage: 280MG TWICE PER DAY
     Route: 065
     Dates: start: 19960101
  4. MELATONIN [Suspect]
     Dosage: 10MG PER DAY
     Route: 065
  5. STIRIPENTOL [Suspect]
     Dosage: 750MG TWICE PER DAY
     Route: 065
     Dates: start: 20030701

REACTIONS (2)
  - ACUTE RESPIRATORY DISTRESS SYNDROME [None]
  - PNEUMONIA [None]
